FAERS Safety Report 7347311-8 (Version None)
Quarter: 2011Q1

REPORT INFORMATION
  Report Type: 
  Country: None (occurrence: None)
  Receive Date: 20110311
  Receipt Date: 20110224
  Transmission Date: 20110831
  Serious: Yes (Hospitalization)
  Sender: FDA-Public Use
  Company Number: BE-BAYER-2011-019470

PATIENT
  Age: 40 Year
  Sex: Male

DRUGS (2)
  1. MOXIFLOXACIN HCL [Suspect]
     Indication: INFLUENZA LIKE ILLNESS
     Dosage: 400 MG, QD
     Route: 048
     Dates: start: 20110214, end: 20110218
  2. DAFALGAN [Concomitant]
     Indication: INFLUENZA LIKE ILLNESS
     Dosage: UNK
     Dates: start: 20110214

REACTIONS (3)
  - RASH MACULAR [None]
  - VASCULITIS [None]
  - PURPURA [None]
